FAERS Safety Report 5242701-1 (Version None)
Quarter: 2007Q1

REPORT INFORMATION
  Report Type: 
  Country: None (occurrence: None)
  Receive Date: 20070214
  Receipt Date: 20070129
  Transmission Date: 20070707
  Serious: Yes (Life-Threatening, Other)
  Sender: FDA-Public Use
  Company Number: 15622

PATIENT
  Age: 68 Year
  Sex: Female

DRUGS (1)
  1. ANZATAX. MFR: MAYNE [Suspect]
     Dosage: 330 MG PER_CYCLE IV
     Route: 042
     Dates: start: 20070104, end: 20070104

REACTIONS (5)
  - CHOKING SENSATION [None]
  - DYSPNOEA [None]
  - FLUSHING [None]
  - HYPERTENSION [None]
  - PULSE PRESSURE DECREASED [None]
